FAERS Safety Report 19847751 (Version 1)
Quarter: 2021Q3

REPORT INFORMATION
  Report Type: Spontaneous
  Country: IN (occurrence: IN)
  Receive Date: 20210917
  Receipt Date: 20210917
  Transmission Date: 20211014
  Serious: Yes (Death)
  Sender: FDA-Public Use
  Company Number: IN-PFIZER INC-202101133655

PATIENT
  Age: 49 Year
  Sex: Female

DRUGS (2)
  1. PALBACE [Suspect]
     Active Substance: PALBOCICLIB
     Indication: BREAST CANCER METASTATIC
     Dosage: 125 MG, CYCLIC (ONCE DAILY X 21DAYS)
     Route: 048
     Dates: start: 20210731
  2. FULVESTRANT. [Concomitant]
     Active Substance: FULVESTRANT
     Dosage: 500 MG

REACTIONS (4)
  - Vomiting [Unknown]
  - Death [Fatal]
  - Nausea [Unknown]
  - Fatigue [Unknown]
